FAERS Safety Report 7720714-5 (Version None)
Quarter: 2011Q3

REPORT INFORMATION
  Report Type: 
  Country: None (occurrence: None)
  Receive Date: 20110831
  Receipt Date: 20110817
  Transmission Date: 20111222
  Serious: Yes (Hospitalization)
  Sender: FDA-Public Use
  Company Number: PHHY2011BR73133

PATIENT
  Sex: Male

DRUGS (2)
  1. EXFORGE [Suspect]
     Indication: HYPERTENSION
     Dosage: ONE TABLET OF 160 MG VALSARTAN AND 5 MG AMLODIPINE AT NIGHT
     Route: 048
  2. FELDENE [Suspect]

REACTIONS (4)
  - DIABETES MELLITUS [None]
  - MALAISE [None]
  - HYPERTENSION [None]
  - RENAL FAILURE [None]
